FAERS Safety Report 19118457 (Version 2)
Quarter: 2021Q2

REPORT INFORMATION
  Report Type: Spontaneous
  Country: JP (occurrence: JP)
  Receive Date: 20210409
  Receipt Date: 20210603
  Transmission Date: 20210717
  Serious: Yes (Hospitalization, Other)
  Sender: FDA-Public Use
  Company Number: JP-009507513-2103JPN000233J

PATIENT
  Age: 7 Decade
  Sex: Male

DRUGS (2)
  1. AXITINIB [Concomitant]
     Active Substance: AXITINIB
     Dosage: UNK
     Route: 065
  2. KEYTRUDA [Suspect]
     Active Substance: PEMBROLIZUMAB
     Indication: RENAL CELL CARCINOMA STAGE IV
     Dosage: 200 MILLIGRAM, Q3W
     Route: 041
     Dates: start: 202010

REACTIONS (3)
  - Immune-mediated hyperthyroidism [Recovered/Resolved]
  - Malignant neoplasm progression [Unknown]
  - Immune-mediated hepatic disorder [Recovering/Resolving]

NARRATIVE: CASE EVENT DATE: 202102
